FAERS Safety Report 4502941-3 (Version None)
Quarter: 2004Q4

REPORT INFORMATION
  Report Type: 
  Country: None (occurrence: None)
  Receive Date: 20041112
  Receipt Date: 20041108
  Transmission Date: 20050328
  Serious: Yes (Other)
  Sender: FDA-Public Use
  Company Number: KII-2004-0013847

PATIENT
  Age: 70 Year
  Sex: Female

DRUGS (8)
  1. MORPHINE SULFATE [Suspect]
     Indication: PAIN
     Dosage: ORAL
     Route: 048
  2. ACETAMINOPHEN AND HYDROCODONE BITARTRATE [Suspect]
     Indication: PAIN
     Dosage: ORAL
     Route: 048
  3. DIPHENHYDRAMINE HCL [Suspect]
     Dosage: ORAL
     Route: 048
  4. ANTIHISTAMINES FOR SYSTEMIC USE () [Suspect]
     Dosage: ORAL
     Route: 048
  5. SSRI () [Suspect]
     Dosage: ORAL
     Route: 048
  6. PHENYTOIN [Suspect]
     Dosage: ORAL
     Route: 048
  7. APC TABLET (ACETYLSALICYLIC ACID, CAFFEINE, PARACETAMOL) [Suspect]
     Dosage: ORAL
     Route: 048
  8. BENZODIAZEPINE DERIVATIVES () [Suspect]

REACTIONS (5)
  - DEPRESSED LEVEL OF CONSCIOUSNESS [None]
  - DRUG SCREEN POSITIVE [None]
  - MULTIPLE DRUG OVERDOSE [None]
  - RESPIRATORY RATE DECREASED [None]
  - SCREAMING [None]
